FAERS Safety Report 5081683-2 (Version None)
Quarter: 2006Q3

REPORT INFORMATION
  Report Type: 
  Country: None (occurrence: None)
  Receive Date: 20060816
  Receipt Date: 20060809
  Transmission Date: 20061208
  Serious: Yes (Life-Threatening, Hospitalization)
  Sender: FDA-Public Use
  Company Number: FR-BOEHRINGER INGELHEIM PHARMACEUTICALS, INC.-2006-FF-00704FF

PATIENT
  Age: 74 Year
  Sex: Male

DRUGS (1)
  1. ASASANTINE LP [Suspect]
     Dosage: 2 CAPSULES DAILY
     Route: 048
     Dates: end: 20050515

REACTIONS (2)
  - MALAISE [None]
  - SUBDURAL HAEMATOMA [None]
